FAERS Safety Report 4318105-2 (Version None)
Quarter: 2004Q1

REPORT INFORMATION
  Report Type: 
  Country: None (occurrence: None)
  Receive Date: 20040315
  Receipt Date: 20040301
  Transmission Date: 20041129
  Serious: Yes (Other)
  Sender: FDA-Public Use
  Company Number: K200400285

PATIENT
  Age: 64 Year
  Sex: Female
  Weight: 52.6 kg

DRUGS (1)
  1. LEVOXYL [Suspect]
     Indication: HYPOTHYROIDISM
     Dosage: SEE IMAGE
     Route: 048
     Dates: start: 20040303

REACTIONS (3)
  - FOREIGN BODY TRAUMA [None]
  - ORAL DISCOMFORT [None]
  - RASH [None]
